FAERS Safety Report 8431486-3 (Version None)
Quarter: 2012Q2

REPORT INFORMATION
  Report Type: 
  Country: None (occurrence: None)
  Receive Date: 20120607
  Receipt Date: 20120607
  Transmission Date: 20120825
  Serious: Yes (Other)
  Sender: FDA-Public Use
  Company Number: None

PATIENT
  Age: 70 Year
  Sex: Female
  Weight: 63.5036 kg

DRUGS (1)
  1. DULERA [Suspect]
     Indication: UPPER RESPIRATORY TRACT INFECTION
     Dosage: 2 INHALES  2 X DAY MOUTH
     Route: 048
     Dates: start: 20120116, end: 20120328

REACTIONS (4)
  - OEDEMA PERIPHERAL [None]
  - MEMORY IMPAIRMENT [None]
  - DYSPHONIA [None]
  - PRODUCT SUBSTITUTION ISSUE [None]
